FAERS Safety Report 6174649-2 (Version None)
Quarter: 2009Q2

REPORT INFORMATION
  Report Type: 
  Country: None (occurrence: None)
  Receive Date: 20090430
  Receipt Date: 20090422
  Transmission Date: 20091009
  Serious: Yes (Other)
  Sender: FDA-Public Use
  Company Number: US-JNJFOC-20090405941

PATIENT
  Age: 84 Year
  Sex: Female
  Weight: 47.63 kg

DRUGS (12)
  1. EXTRA STRENGTH TYLENOL [Suspect]
     Route: 048
  2. EXTRA STRENGTH TYLENOL [Suspect]
     Indication: INSOMNIA
     Route: 048
  3. CALCITONIN [Concomitant]
     Indication: OSTEOPOROSIS
     Route: 045
  4. COZAAR [Concomitant]
     Indication: HYPERTENSION
  5. METOPROLOL TARTRATE [Concomitant]
     Indication: HYPERTENSION
  6. MULTI-VITAMINS [Concomitant]
     Indication: MEDICAL DIET
  7. PROFERRIN-FORTE [Concomitant]
     Indication: ANAEMIA
  8. OMEPRAZOLE [Concomitant]
     Indication: GASTROOESOPHAGEAL REFLUX DISEASE
  9. SIMVASTATIN [Concomitant]
     Indication: BLOOD CHOLESTEROL
  10. CALCIUM CARBONATE [Concomitant]
     Indication: MINERAL SUPPLEMENTATION
  11. FISH OIL [Concomitant]
     Indication: MEDICAL DIET
  12. VITAMIN A [Concomitant]
     Indication: RETINITIS PIGMENTOSA

REACTIONS (1)
  - PRODUCT TAMPERING [None]
